FAERS Safety Report 5009285-4 (Version None)
Quarter: 2006Q2

REPORT INFORMATION
  Report Type: 
  Country: None (occurrence: None)
  Receive Date: 20060522
  Receipt Date: 20060428
  Transmission Date: 20061013
  Serious: Yes (Hospitalization, Other)
  Sender: FDA-Public Use
  Company Number: 2006058515

PATIENT
  Age: 58 Year
  Sex: Male
  Weight: 117.9352 kg

DRUGS (1)
  1. BEXTRA [Suspect]
     Indication: ARTHRALGIA
     Dosage: 40 MG (20 MG, 1 IN 2 D)
     Dates: start: 20030715

REACTIONS (2)
  - ANOXIC ENCEPHALOPATHY [None]
  - SUDDEN CARDIAC DEATH [None]
